FAERS Safety Report 7757628-0 (Version None)
Quarter: 2011Q3

REPORT INFORMATION
  Report Type: 
  Country: None (occurrence: None)
  Receive Date: 20110916
  Receipt Date: 20110906
  Transmission Date: 20111222
  Serious: Yes (Hospitalization)
  Sender: FDA-Public Use
  Company Number: US-BAYER-201031244NA

PATIENT
  Age: 30 Year
  Sex: Female
  Weight: 74.83 kg

DRUGS (12)
  1. CYTOMEL [Concomitant]
     Dosage: UNK
     Route: 048
     Dates: start: 20070101, end: 20100601
  2. HYDROCODONE/GG SYRUP [Concomitant]
  3. FLUCONAZOLE [Concomitant]
     Dosage: 150 MG, UNK
     Route: 048
  4. ADDERALL XR 10 [Concomitant]
     Dosage: 5 MG, TID
  5. YAZ [Suspect]
     Indication: OVARIAN CYST
     Dosage: UNK UNK, QD
     Route: 048
     Dates: start: 20070523, end: 20070727
  6. SYNTHROID [Concomitant]
     Dosage: UNK
     Route: 048
     Dates: start: 20070101, end: 20100601
  7. ROZEREM [Concomitant]
     Dosage: 8 MG, UNK
     Route: 048
  8. YAZ [Suspect]
     Indication: MENSTRUAL CYCLE MANAGEMENT
  9. PROVIGIL [Concomitant]
     Dosage: 100 MG, UNK
     Route: 048
     Dates: start: 20041001
  10. WELLBUTRIN [Concomitant]
     Dosage: 150 MG, QD
     Route: 048
  11. LEXAPRO [Concomitant]
     Dosage: 10 MG, UNK
     Route: 048
  12. LEVAQUIN [Concomitant]
     Dosage: 500 MG, UNK
     Route: 048

REACTIONS (4)
  - PARAESTHESIA [None]
  - CLUMSINESS [None]
  - TRANSIENT ISCHAEMIC ATTACK [None]
  - DYSARTHRIA [None]
